FAERS Safety Report 6767665-0 (Version None)
Quarter: 2010Q2

REPORT INFORMATION
  Report Type: 
  Country: None (occurrence: None)
  Receive Date: 20100614
  Receipt Date: 20100601
  Transmission Date: 20101027
  Serious: Yes (Hospitalization)
  Sender: FDA-Public Use
  Company Number: US-ELI_LILLY_AND_COMPANY-US201006001751

PATIENT
  Sex: Female

DRUGS (5)
  1. FORTEO [Suspect]
     Indication: OSTEOPOROSIS
     Dosage: 20 UG, DAILY (1/D)
     Dates: start: 20100414, end: 20100503
  2. SINGULAIR [Concomitant]
     Dosage: 10 MG, UNK
  3. SYNTHROID [Concomitant]
     Dosage: 88 MG, UNK
  4. ADVAIR DISKUS 100/50 [Concomitant]
  5. VITAMIN TAB [Concomitant]

REACTIONS (3)
  - BLOOD COUNT ABNORMAL [None]
  - GASTROINTESTINAL HAEMORRHAGE [None]
  - INFLUENZA [None]
